FAERS Safety Report 15626935 (Version 1)
Quarter: 2018Q4

REPORT INFORMATION
  Report Type: Spontaneous
  Country: CH (occurrence: CH)
  Receive Date: 20181116
  Receipt Date: 20181116
  Transmission Date: 20190205
  Serious: Yes (Life-Threatening, Hospitalization, Other)
  Sender: FDA-Public Use
  Company Number: CH-PFIZER INC-2018469447

PATIENT
  Age: 89 Year
  Sex: Female

DRUGS (18)
  1. CONCOR [Concomitant]
     Active Substance: BISOPROLOL FUMARATE
     Dosage: UNK
     Dates: start: 2015
  2. SYMFONA N [Concomitant]
     Dosage: UNK
     Dates: end: 20181031
  3. LAXOBERON [Concomitant]
     Active Substance: SODIUM PICOSULFATE
     Dosage: UNK
     Dates: start: 2016
  4. NACL [Concomitant]
     Active Substance: SODIUM CHLORIDE
     Dosage: UNK
     Dates: start: 20181031, end: 20181103
  5. TEMESTA EXPIDET [Suspect]
     Active Substance: LORAZEPAM
     Dosage: 0.5 MG, AS NEEDED (MAX 1X/D )
     Route: 048
     Dates: start: 2015
  6. ARIMIDEX [Concomitant]
     Active Substance: ANASTROZOLE
     Dosage: UNK
  7. ASPIRIN CARDIO [Concomitant]
     Active Substance: ASPIRIN
     Dosage: UNK
     Dates: start: 2015
  8. CLEXANE [Concomitant]
     Active Substance: ENOXAPARIN SODIUM
     Dosage: UNK
     Dates: start: 20181031
  9. DEANXIT [Suspect]
     Active Substance: FLUPENTIXOL DIHYDROCHLORIDE\MELITRACEN HYDROCHLORIDE
     Dosage: 1 DF, 1X/DAY (1 DF: (FLUPENTIXOL DIHYDROCHLORIDE): 0.5MG; (MELITRACEN HYDROCHLORIDE): 10MG)
     Route: 048
     Dates: start: 1991, end: 20181031
  10. AMLODIPINE [Concomitant]
     Active Substance: AMLODIPINE BESYLATE
     Dosage: UNK
     Dates: start: 201609
  11. TEMESTA EXPIDET [Suspect]
     Active Substance: LORAZEPAM
     Dosage: 2.5 MG, 1X/DAY
     Route: 048
  12. SAROTEN [Suspect]
     Active Substance: AMITRIPTYLINE
     Dosage: 25 MG, 1X/DAY
     Route: 048
     Dates: start: 2016, end: 20181031
  13. ENALAPRIL [Suspect]
     Active Substance: ENALAPRIL
     Dosage: 10 MG, 1X/DAY
     Route: 048
     Dates: start: 2017, end: 20181031
  14. ACIDUM FOLICUM [Concomitant]
     Active Substance: FOLIC ACID
     Dosage: UNK
     Dates: start: 20181101
  15. DAFLON [DIOSMIN] [Concomitant]
     Active Substance: DIOSMIN
     Dosage: UNK
     Dates: start: 2016, end: 20181031
  16. DAFALGAN [Concomitant]
     Active Substance: ACETAMINOPHEN
     Dosage: UNK, AS NEEDED
     Dates: start: 20181031
  17. IRFEN [Concomitant]
     Active Substance: IBUPROFEN
     Dosage: 1 DF, SINGLE
     Dates: start: 20181031, end: 20181031
  18. VITAMIN D3 [Concomitant]
     Active Substance: CHOLECALCIFEROL
     Dosage: UNK (IN RESERVE)
     Dates: start: 20181103

REACTIONS (9)
  - Vomiting [Recovered/Resolved]
  - Inappropriate antidiuretic hormone secretion [Not Recovered/Not Resolved]
  - Psychomotor skills impaired [Recovering/Resolving]
  - Hyponatraemia [Recovering/Resolving]
  - Headache [Recovering/Resolving]
  - Hyponatraemia [Not Recovered/Not Resolved]
  - Inappropriate antidiuretic hormone secretion [Recovering/Resolving]
  - Nausea [Unknown]
  - Asthenia [Recovering/Resolving]

NARRATIVE: CASE EVENT DATE: 2016
